FAERS Safety Report 18300439 (Version 1)
Quarter: 2020Q3

REPORT INFORMATION
  Report Type: Spontaneous
  Country: US (occurrence: US)
  Receive Date: 20200922
  Receipt Date: 20200922
  Transmission Date: 20201103
  Serious: Yes (Death)
  Sender: FDA-Public Use
  Company Number: None

PATIENT
  Age: 65 Year
  Sex: Female

DRUGS (1)
  1. OPDIVO [Suspect]
     Active Substance: NIVOLUMAB
     Dosage: OTHER FREQUENCY:OTHER;?
     Route: 042
     Dates: start: 202008

REACTIONS (1)
  - Disease progression [None]

NARRATIVE: CASE EVENT DATE: 20200917
